FAERS Safety Report 6832234-0 (Version None)
Quarter: 2010Q2

REPORT INFORMATION
  Report Type: 
  Country: None (occurrence: None)
  Receive Date: 20100607
  Receipt Date: 20100622
  Transmission Date: 20101027
  Serious: Yes (Other)
  Sender: FDA-Public Use
  Company Number: 201006AGG00938

PATIENT
  Age: 70 Year
  Sex: Male

DRUGS (5)
  1. TIROFIBAN HYDROCHLORIDE (AGGRASTAT (TIROFIBAN HCL)) [Suspect]
     Indication: ACUTE MYOCARDIAL INFARCTION
     Dosage: (25 MICROGRAM/KG/DAILY INTRAVENOUS)), (INTRAVENOUS))
     Route: 042
  2. TIROFIBAN HYDROCHLORIDE (AGGRASTAT (TIROFIBAN HCL)) [Suspect]
     Indication: ACUTE MYOCARDIAL INFARCTION
     Dosage: (25 MICROGRAM/KG/DAILY INTRAVENOUS)), (INTRAVENOUS))
     Route: 042
  3. HEPARIN [Concomitant]
  4. NITROGLYCERIN [Concomitant]
  5. CLOPIDOGREL BISULFATE [Concomitant]

REACTIONS (7)
  - DYSPNOEA EXERTIONAL [None]
  - HAEMOPTYSIS [None]
  - LUNG CONSOLIDATION [None]
  - POST PROCEDURAL COMPLICATION [None]
  - PULMONARY FIBROSIS [None]
  - PULMONARY HAEMORRHAGE [None]
  - PULMONARY OEDEMA [None]
